FAERS Safety Report 13675457 (Version 1)
Quarter: 2017Q2

REPORT INFORMATION
  Report Type: Report from Study
  Country: US (occurrence: US)
  Receive Date: 20170621
  Receipt Date: 20170621
  Transmission Date: 20170830
  Serious: Yes (Death, Life-Threatening, Hospitalization)
  Sender: FDA-Public Use
  Company Number: US-ROCHE-1950817

PATIENT
  Age: 69 Year
  Sex: Female
  Weight: 37.05 kg

DRUGS (24)
  1. CARBIDOPA/LEVODOPA [Concomitant]
     Active Substance: CARBIDOPA\LEVODOPA
  2. TIAZAC (UNITED STATES) [Concomitant]
  3. PRAVASTATIN. [Concomitant]
     Active Substance: PRAVASTATIN
  4. BLINDED ONT-380 [Suspect]
     Active Substance: IRBINITINIB
     Indication: HER-2 POSITIVE BREAST CANCER
     Route: 065
     Dates: start: 20170516, end: 20170601
  5. OMEPRAZOLE. [Concomitant]
     Active Substance: OMEPRAZOLE
  6. ONDANSETRON [Concomitant]
     Active Substance: ONDANSETRON
  7. TRASTUZUMAB [Suspect]
     Active Substance: TRASTUZUMAB
     Indication: HER-2 POSITIVE BREAST CANCER
     Route: 042
     Dates: start: 20170516, end: 20170516
  8. ELIQUIS [Concomitant]
     Active Substance: APIXABAN
  9. RESTASIS [Concomitant]
     Active Substance: CYCLOSPORINE
  10. GABAPENTIN. [Concomitant]
     Active Substance: GABAPENTIN
  11. LOPERAMIDE [Concomitant]
     Active Substance: LOPERAMIDE
  12. CAPECITABINE. [Suspect]
     Active Substance: CAPECITABINE
     Indication: HER-2 POSITIVE BREAST CANCER
     Route: 048
     Dates: start: 20170516, end: 20170529
  13. PERCOCET [Concomitant]
     Active Substance: ACETAMINOPHEN\OXYCODONE HYDROCHLORIDE
  14. PROCHLORPERAZINE. [Concomitant]
     Active Substance: PROCHLORPERAZINE
  15. HYDROXYZINE PAMOATE. [Concomitant]
     Active Substance: HYDROXYZINE PAMOATE
  16. POTASSIUM CHLORIDE. [Concomitant]
     Active Substance: POTASSIUM CHLORIDE
  17. LOMOTIL [Concomitant]
     Active Substance: ATROPINE SULFATE\DIPHENOXYLATE HYDROCHLORIDE
  18. DOCUSATE SODIUM. [Concomitant]
     Active Substance: DOCUSATE SODIUM
  19. FOLIC ACID. [Concomitant]
     Active Substance: FOLIC ACID
  20. METOPROLOL. [Concomitant]
     Active Substance: METOPROLOL
  21. MIRTAZAPINE. [Concomitant]
     Active Substance: MIRTAZAPINE
  22. FERROUS SULFATE. [Concomitant]
     Active Substance: FERROUS SULFATE
  23. LORAZEPAM. [Concomitant]
     Active Substance: LORAZEPAM
  24. NASACORT ALLERGY 24HR [Concomitant]
     Active Substance: TRIAMCINOLONE ACETONIDE
     Route: 045

REACTIONS (5)
  - Acute respiratory failure [None]
  - Multiple organ dysfunction syndrome [Fatal]
  - Acute kidney injury [None]
  - Diarrhoea [Unknown]
  - Hypovolaemic shock [None]

NARRATIVE: CASE EVENT DATE: 20170602
